FAERS Safety Report 9261588 (Version 1)
Quarter: 2013Q2

REPORT INFORMATION
  Report Type: Spontaneous
  Country: US (occurrence: US)
  Receive Date: 20130429
  Receipt Date: 20130429
  Transmission Date: 20140414
  Serious: Yes (Other)
  Sender: FDA-Public Use
  Company Number: US-ASTRAZENECA-2013SE26860

PATIENT
  Sex: 0

DRUGS (3)
  1. BRILINTA [Suspect]
     Route: 048
  2. ASPIRIN [Suspect]
     Route: 065
  3. COUMADIN [Suspect]
     Route: 065

REACTIONS (1)
  - Haemorrhage [Unknown]
